FAERS Safety Report 5084952-5 (Version None)
Quarter: 2006Q3

REPORT INFORMATION
  Report Type: 
  Country: None (occurrence: None)
  Receive Date: 20060821
  Receipt Date: 20060811
  Transmission Date: 20061208
  Serious: Yes (Hospitalization)
  Sender: FDA-Public Use
  Company Number: BR-ABBOTT-06P-020-0340867-00

PATIENT

DRUGS (1)
  1. KLARICID IV [Suspect]
     Indication: PNEUMONIA
     Route: 042
     Dates: start: 20060101

REACTIONS (1)
  - PNEUMONIA [None]
